FAERS Safety Report 4811574-0 (Version None)
Quarter: 2005Q4

REPORT INFORMATION
  Report Type: 
  Country: None (occurrence: None)
  Receive Date: 20051027
  Receipt Date: 20050525
  Transmission Date: 20060501
  Serious: Yes (Death)
  Sender: FDA-Public Use
  Company Number: 200511340EU

PATIENT
  Age: 17 Year
  Sex: Male

DRUGS (2)
  1. LANTUS [Suspect]
     Indication: DIABETES MELLITUS
     Route: 058
  2. NOVORAPID [Concomitant]
     Indication: DIABETES MELLITUS

REACTIONS (3)
  - ASPIRATION [None]
  - DIABETIC COMA [None]
  - HEPATIC STEATOSIS [None]
